FAERS Safety Report 16692108 (Version 1)
Quarter: 2019Q3

REPORT INFORMATION
  Report Type: Report from Study
  Country: KR (occurrence: KR)
  Receive Date: 20190812
  Receipt Date: 20190812
  Transmission Date: 20191004
  Serious: Yes (Other)
  Sender: FDA-Public Use
  Company Number: KR-ROCHE-2279605

PATIENT

DRUGS (6)
  1. BINIMETINIB [Suspect]
     Active Substance: BINIMETINIB
     Dosage: 2 WEEKS/1 WEEK ON/OFF
     Route: 065
  2. CAPECITABINE. [Suspect]
     Active Substance: CAPECITABINE
     Indication: BILE DUCT CANCER
     Dosage: 2 WEEK ON/1WEEK OFF
     Route: 065
  3. CAPECITABINE. [Suspect]
     Active Substance: CAPECITABINE
     Dosage: 2 WEEKS/1 WEEK ON/OFF
     Route: 065
  4. CAPECITABINE. [Suspect]
     Active Substance: CAPECITABINE
     Dosage: 2 WEEKS/1 WEEK ON/OFF
     Route: 065
  5. BINIMETINIB [Suspect]
     Active Substance: BINIMETINIB
     Indication: BILE DUCT CANCER
     Dosage: 2 WEEKS/1 WEEK ON/OFF
     Route: 065
  6. BINIMETINIB [Suspect]
     Active Substance: BINIMETINIB
     Dosage: 2 WEEKS/1 WEEK ON/OFF
     Route: 065

REACTIONS (23)
  - Fatigue [Unknown]
  - Nausea [Unknown]
  - Infection [Unknown]
  - Mental status changes [Unknown]
  - Stomatitis [Unknown]
  - Blood bilirubin increased [Unknown]
  - Ascites [Unknown]
  - Abdominal pain [Unknown]
  - Dyspnoea [Unknown]
  - Peritonitis [Unknown]
  - Blood alkaline phosphatase increased [Unknown]
  - Thrombocytopenia [Unknown]
  - Pyrexia [Unknown]
  - Upper gastrointestinal haemorrhage [Unknown]
  - Embolism [Unknown]
  - Cholecystitis [Unknown]
  - Hypokalaemia [Unknown]
  - Cholangitis [Unknown]
  - Pneumonitis [Unknown]
  - Delirium [Unknown]
  - Urinary retention [Unknown]
  - Anaemia [Unknown]
  - Neutropenia [Unknown]
